FAERS Safety Report 22032955 (Version 4)
Quarter: 2023Q2

REPORT INFORMATION
  Report Type: Report from Study
  Country: US (occurrence: US)
  Receive Date: 20230224
  Receipt Date: 20230418
  Transmission Date: 20230721
  Serious: Yes (Other)
  Sender: FDA-Public Use
  Company Number: US-ABBVIE-4317063

PATIENT
  Sex: Female

DRUGS (1)
  1. RINVOQ [Suspect]
     Active Substance: UPADACITINIB
     Indication: Psoriatic arthropathy
     Route: 048

REACTIONS (7)
  - Hepatic cirrhosis [Unknown]
  - Mental impairment [Unknown]
  - Psoriasis [Unknown]
  - Platelet disorder [Unknown]
  - Psoriatic arthropathy [Unknown]
  - Medical procedure [Unknown]
  - Ammonia increased [Unknown]
